FAERS Safety Report 19459523 (Version 1)
Quarter: 2021Q2

REPORT INFORMATION
  Report Type: Spontaneous
  Country: CA (occurrence: CA)
  Receive Date: 20210624
  Receipt Date: 20210624
  Transmission Date: 20210717
  Serious: Yes (Hospitalization)
  Sender: FDA-Public Use
  Company Number: CA-TEVA-2021-CA-1924599

PATIENT
  Age: 17 Year
  Sex: Female

DRUGS (1)
  1. OLANZAPINE. [Suspect]
     Active Substance: OLANZAPINE
     Indication: OVERDOSE
     Route: 048

REACTIONS (14)
  - Sluggishness [Recovered/Resolved]
  - Abdominal pain [Unknown]
  - Abnormal behaviour [Recovered/Resolved]
  - Headache [Recovered/Resolved]
  - Hallucination [Recovered/Resolved]
  - Lethargy [Recovered/Resolved]
  - Toxicity to various agents [Unknown]
  - Vomiting [Unknown]
  - Agitation [Recovered/Resolved]
  - Miosis [Unknown]
  - Tachycardia [Unknown]
  - Overdose [Unknown]
  - Aggression [Recovered/Resolved]
  - Hyporesponsive to stimuli [Recovered/Resolved]
